FAERS Safety Report 16394119 (Version 1)
Quarter: 2019Q2

REPORT INFORMATION
  Report Type: Spontaneous
  Country: FR (occurrence: FR)
  Receive Date: 20190605
  Receipt Date: 20190605
  Transmission Date: 20190711
  Serious: Yes (Other)
  Sender: FDA-Public Use
  Company Number: PHHY2019FR123811

PATIENT
  Age: 35 Year
  Sex: Male

DRUGS (2)
  1. PARACETAMOL+CODEINE [Suspect]
     Active Substance: ACETAMINOPHEN\CODEINE PHOSPHATE
     Indication: PRODUCT USED FOR UNKNOWN INDICATION
     Dosage: 10 TABLETS/DAY
     Route: 065
  2. TRAMADOL. [Suspect]
     Active Substance: TRAMADOL
     Indication: PRODUCT USED FOR UNKNOWN INDICATION
     Dosage: UP TO 1.8 G/DAY
     Route: 065

REACTIONS (2)
  - Drug abuse [Unknown]
  - Cluster headache [Unknown]
